FAERS Safety Report 10028595 (Version 2)
Quarter: 2014Q1

REPORT INFORMATION
  Report Type: Spontaneous
  Country: DE (occurrence: DE)
  Receive Date: 20140321
  Receipt Date: 20140327
  Transmission Date: 20141002
  Serious: Yes (Hospitalization)
  Sender: FDA-Public Use
  Company Number: DE-TEVA-468402GER

PATIENT
  Age: 88 Year
  Sex: Female
  Weight: 85 kg

DRUGS (1)
  1. FENTANYL-PFLASTER [Suspect]
     Indication: PAIN
     Route: 062

REACTIONS (2)
  - Convulsion [Recovered/Resolved]
  - Overdose [Unknown]
